FAERS Safety Report 9718131 (Version 1)
Quarter: 2013Q4

REPORT INFORMATION
  Report Type: Spontaneous
  Country: US (occurrence: US)
  Receive Date: 20131125
  Receipt Date: 20131125
  Transmission Date: 20140711
  Serious: No
  Sender: FDA-Public Use
  Company Number: US-VIVUS-2013V1000041

PATIENT
  Age: 60 Year
  Sex: Female

DRUGS (7)
  1. QSYMIA 3.75MG/23MG [Suspect]
     Indication: WEIGHT DECREASED
     Dosage: DAILY DOSE: 1 CAPSULE,
     Dates: start: 201212
  2. QSYMIA [Suspect]
     Indication: WEIGHT DECREASED
     Dosage: DAILY DOSE: 1 CAPSULE,
     Dates: end: 20130118
  3. ZYRTEC [Concomitant]
     Indication: MULTIPLE ALLERGIES
     Route: 048
  4. DIOVAN HCT [Concomitant]
     Indication: BLOOD PRESSURE
     Route: 048
     Dates: start: 1998
  5. PREMARIN [Concomitant]
     Indication: HORMONE REPLACEMENT THERAPY
     Route: 048
     Dates: start: 2009
  6. PANTOPRAZOLE [Concomitant]
     Indication: PROPHYLAXIS AGAINST GASTROINTESTINAL ULCER
     Route: 048
  7. BIOTIN [Concomitant]
     Indication: VITAMIN SUPPLEMENTATION
     Route: 048

REACTIONS (2)
  - Hypersensitivity [Recovering/Resolving]
  - Inappropriate schedule of drug administration [Recovered/Resolved]
